FAERS Safety Report 7023349-5 (Version None)
Quarter: 2010Q3

REPORT INFORMATION
  Report Type: 
  Country: None (occurrence: None)
  Receive Date: 20100930
  Receipt Date: 20100921
  Transmission Date: 20110219
  Serious: Yes (Other)
  Sender: FDA-Public Use
  Company Number: RU-ABBOTT-10P-251-0672496-00

PATIENT
  Age: 18 Month
  Sex: Male

DRUGS (4)
  1. DEPAKENE [Suspect]
     Indication: EPILEPSY
     Route: 048
     Dates: start: 20090909, end: 20100524
  2. CLONAZEPAM [Concomitant]
     Indication: EPILEPSY
     Dates: start: 20090909
  3. UNKNOWN THERAPEUTIC PRODUCTS [Concomitant]
     Indication: PRODUCT USED FOR UNKNOWN INDICATION
     Dates: start: 20090909
  4. MEXIDOLUM [Concomitant]
     Indication: EPILEPSY
     Dates: start: 20090909

REACTIONS (3)
  - DERMATITIS ATOPIC [None]
  - HYPERAEMIA [None]
  - SKIN EXFOLIATION [None]
